FAERS Safety Report 7426913-4 (Version None)
Quarter: 2011Q2

REPORT INFORMATION
  Report Type: 
  Country: None (occurrence: None)
  Receive Date: 20110420
  Receipt Date: 20110328
  Transmission Date: 20111010
  Serious: No
  Sender: FDA-Public Use
  Company Number: US-B.I. PHARMACEUTICALS,INC./RIDGEFIELD-2011-BP-02347BP

PATIENT
  Age: 63 Year
  Sex: Female

DRUGS (12)
  1. LOTREL [Concomitant]
  2. ASPIRIN [Concomitant]
  3. BYSTOLIC [Concomitant]
  4. NEXIUM [Concomitant]
  5. ISORDIL [Concomitant]
  6. SPIRIVA [Suspect]
     Indication: EMPHYSEMA
     Dosage: 18 MCG
  7. ZOLOFT [Concomitant]
  8. ACTOS [Concomitant]
  9. LIPITOR [Concomitant]
  10. CLONIDINE [Concomitant]
  11. JANUMET [Concomitant]
  12. ADVAIR HFA [Concomitant]

REACTIONS (1)
  - DRUG INEFFECTIVE [None]
